FAERS Safety Report 7773010-4 (Version None)
Quarter: 2011Q3

REPORT INFORMATION
  Report Type: 
  Country: None (occurrence: None)
  Receive Date: 20110922
  Receipt Date: 20101122
  Transmission Date: 20111222
  Serious: No
  Sender: FDA-Public Use
  Company Number: US-ASTRAZENECA-2010SE55586

PATIENT
  Age: 48 Year
  Sex: Male
  Weight: 88.5 kg

DRUGS (3)
  1. TEGRETOL [Concomitant]
  2. SEROQUEL [Suspect]
     Indication: SCHIZOPHRENIA
     Dosage: 200 MG DAILY AND 800 MG AT NIGHT
     Route: 048
     Dates: start: 20050101
  3. VALIUM [Concomitant]

REACTIONS (4)
  - INSOMNIA [None]
  - HYPERTENSION [None]
  - DRUG DOSE OMISSION [None]
  - BLOOD TRIGLYCERIDES INCREASED [None]
